FAERS Safety Report 9415125 (Version 2)
Quarter: 2013Q3

REPORT INFORMATION
  Report Type: Spontaneous
  Country: US (occurrence: US)
  Receive Date: 20130723
  Receipt Date: 20130813
  Transmission Date: 20140515
  Serious: Yes (Other)
  Sender: FDA-Public Use
  Company Number: US-JNJFOC-20130706920

PATIENT
  Sex: Male

DRUGS (7)
  1. INVEGA SUSTENNA [Suspect]
     Indication: SCHIZOPHRENIA
     Route: 030
     Dates: start: 20130626
  2. INVEGA SUSTENNA [Suspect]
     Indication: SCHIZOPHRENIA
     Route: 030
     Dates: start: 201304, end: 2013
  3. INVEGA SUSTENNA [Suspect]
     Indication: SCHIZOPHRENIA
     Route: 030
     Dates: start: 2013
  4. ZYPREXA [Suspect]
     Indication: SCHIZOPHRENIA
     Route: 048
  5. ZYPREXA [Suspect]
     Indication: SCHIZOPHRENIA
     Route: 048
  6. COGENTIN [Concomitant]
     Indication: EXTRAPYRAMIDAL DISORDER
     Route: 048
  7. LITHIUM [Concomitant]
     Indication: DRUG THERAPY
     Route: 048

REACTIONS (3)
  - Oculogyric crisis [Recovered/Resolved with Sequelae]
  - Psychotic disorder [Recovering/Resolving]
  - Extrapyramidal disorder [Unknown]
